FAERS Safety Report 23201230 (Version 1)
Quarter: 2023Q4

REPORT INFORMATION
  Report Type: Spontaneous
  Country: CZ (occurrence: CZ)
  Receive Date: 20231118
  Receipt Date: 20231118
  Transmission Date: 20240109
  Serious: Yes (Other)
  Sender: FDA-Public Use
  Company Number: CZ-Accord-390318

PATIENT
  Age: 43 Year
  Sex: Male

DRUGS (1)
  1. TEMOZOLOMIDE [Suspect]
     Active Substance: TEMOZOLOMIDE
     Indication: Glioblastoma
     Dosage: WITH 60 GY ACTINOTHERAPY

REACTIONS (1)
  - Myelodysplastic syndrome with excess blasts [Unknown]

NARRATIVE: CASE EVENT DATE: 20220401
